APPROVED DRUG PRODUCT: RHOFADE
Active Ingredient: OXYMETAZOLINE HYDROCHLORIDE
Strength: 1%
Dosage Form/Route: CREAM;TOPICAL
Application: N208552 | Product #001
Applicant: MAYNE PHARMA LLC
Approved: Jan 18, 2017 | RLD: Yes | RS: Yes | Type: RX

PATENTS:
Patent 7812049 | Expires: May 2, 2028
Patent 9974773 | Expires: Jun 11, 2035
Patent 10751325 | Expires: Jun 11, 2035
Patent 12350255 | Expires: Jun 11, 2035
Patent 10335391 | Expires: Jun 11, 2035
Patent 11517560 | Expires: Jun 11, 2035
Patent 8883838 | Expires: Dec 1, 2031